FAERS Safety Report 9066099 (Version 1)
Quarter: 2013Q1

REPORT INFORMATION
  Report Type: Spontaneous
  Country: GB (occurrence: GB)
  Receive Date: 20130201
  Receipt Date: 20130201
  Transmission Date: 20140127
  Serious: Yes (Hospitalization)
  Sender: FDA-Public Use
  Company Number: GB-AMGEN-GBRSP2013006600

PATIENT
  Age: 63 Year
  Sex: Female
  Weight: 66 kg

DRUGS (7)
  1. ENBREL [Suspect]
     Indication: PSORIATIC ARTHROPATHY
     Dosage: 25 MG, 2X/WEEK
     Route: 058
     Dates: start: 20070703, end: 20121204
  2. ESOMEPRAZOLE [Concomitant]
     Dosage: UNK UNK, UNK
  3. DOMPERIDONE [Concomitant]
     Dosage: UNK UNK, UNK
  4. FOLIC ACID [Concomitant]
     Dosage: UNK UNK, UNK
  5. VENLAFAXINE [Concomitant]
     Dosage: UNK UNK, UNK
  6. LAXIDO [Concomitant]
     Dosage: UNK UNK, UNK
  7. ETODOLAC [Concomitant]
     Dosage: UNK UNK, UNK

REACTIONS (6)
  - Headache [Recovering/Resolving]
  - Abdominal pain [Recovering/Resolving]
  - Dyspnoea [Recovering/Resolving]
  - Fatigue [Recovering/Resolving]
  - Pyrexia [Recovering/Resolving]
  - Vasculitis [Recovering/Resolving]
